FAERS Safety Report 20115603 (Version 1)
Quarter: 2021Q4

REPORT INFORMATION
  Report Type: Spontaneous
  Country: CN (occurrence: None)
  Receive Date: 20211126
  Receipt Date: 20211126
  Transmission Date: 20220304
  Serious: Yes (Other)
  Sender: FDA-Public Use
  Company Number: CN-ROCHE-2958455

PATIENT
  Age: 35 Year
  Sex: Female

DRUGS (12)
  1. HERCEPTIN [Suspect]
     Active Substance: TRASTUZUMAB
     Indication: Breast cancer
     Dosage: ON 16 MAY 2020, 04 JUN 2020 AND 27 JUN 2020
     Route: 042
  2. HERCEPTIN [Suspect]
     Active Substance: TRASTUZUMAB
     Indication: Metastases to lymph nodes
     Route: 042
     Dates: start: 202007
  3. PERJETA [Suspect]
     Active Substance: PERTUZUMAB
     Indication: Breast cancer
     Dosage: ON 16 MAY 2020, 04 JUN 2020 AND 27 JUN 2020
     Route: 065
  4. PERJETA [Suspect]
     Active Substance: PERTUZUMAB
     Indication: Metastases to lymph nodes
  5. XELODA [Suspect]
     Active Substance: CAPECITABINE
     Indication: Breast cancer
     Route: 048
     Dates: start: 202007
  6. XELODA [Suspect]
     Active Substance: CAPECITABINE
     Indication: Metastases to lymph nodes
     Route: 048
  7. ADO-TRASTUZUMAB EMTANSINE [Concomitant]
     Active Substance: ADO-TRASTUZUMAB EMTANSINE
     Indication: Breast cancer
     Dates: start: 20200810
  8. ADO-TRASTUZUMAB EMTANSINE [Concomitant]
     Active Substance: ADO-TRASTUZUMAB EMTANSINE
     Indication: Metastases to lymph nodes
  9. DOXORUBICIN HYDROCHLORIDE [Concomitant]
     Active Substance: DOXORUBICIN HYDROCHLORIDE
     Dosage: ON 16 MAY 2020, 04 JUN 2020 AND 27 JUN 2020
  10. CYCLOPHOSPHAMIDE [Concomitant]
     Active Substance: CYCLOPHOSPHAMIDE
     Dosage: ON 16 MAY 2020, 04 JUN 2020 AND 27 JUN 2020
  11. PYROTINIB [Concomitant]
     Active Substance: PYROTINIB
     Dates: start: 202007
  12. DOCETAXEL [Concomitant]
     Active Substance: DOCETAXEL
     Dosage: ON 23 NOV 2019, 19 DEC 2019, 07 JAN 2020, 31 JAN 2020, 21 FEB 2020, AND 19 MAR 2020

REACTIONS (9)
  - Myelosuppression [Recovering/Resolving]
  - Granulocytopenia [Recovering/Resolving]
  - Pyrexia [Recovering/Resolving]
  - Diarrhoea [Unknown]
  - Asthenia [Unknown]
  - Nausea [Unknown]
  - Skin exfoliation [Unknown]
  - Weight decreased [Unknown]
  - Back pain [Recovering/Resolving]
